FAERS Safety Report 8164439-3 (Version None)
Quarter: 2012Q1

REPORT INFORMATION
  Report Type: 
  Country: None (occurrence: None)
  Receive Date: 20120224
  Receipt Date: 20120216
  Transmission Date: 20120608
  Serious: Yes (Hospitalization, Other)
  Sender: FDA-Public Use
  Company Number: KR-ABBOTT-12P-090-0901504-00

PATIENT
  Sex: Male
  Weight: 95 kg

DRUGS (3)
  1. ZEMPLAR [Suspect]
     Indication: VITAMIN SUPPLEMENTATION
     Route: 042
     Dates: start: 20070806
  2. EPOKINE [Concomitant]
     Indication: ANAEMIA
     Route: 058
     Dates: start: 20070109
  3. FOSRENOL [Concomitant]
     Indication: BLOOD PHOSPHORUS ABNORMAL
     Route: 048
     Dates: start: 20090514

REACTIONS (5)
  - VITREOUS HAEMORRHAGE [None]
  - ARTERIOSCLEROSIS [None]
  - VISION BLURRED [None]
  - ANGINA PECTORIS [None]
  - ARTERIOVENOUS FISTULA [None]
